FAERS Safety Report 7276029-5 (Version None)
Quarter: 2011Q1

REPORT INFORMATION
  Report Type: 
  Country: None (occurrence: None)
  Receive Date: 20110204
  Receipt Date: 20110202
  Transmission Date: 20110831
  Serious: Yes (Hospitalization)
  Sender: FDA-Public Use
  Company Number: B0697696A

PATIENT
  Sex: Male

DRUGS (6)
  1. ASPIRIN [Concomitant]
     Dosage: 100MG PER DAY
  2. NEODUPLAMOX [Suspect]
     Indication: INFLUENZA
     Route: 048
     Dates: start: 20110127, end: 20110127
  3. VERAPAMIL [Concomitant]
     Dosage: 120MG PER DAY
  4. NOVORAPID [Concomitant]
  5. ZOFENOPRIL [Concomitant]
     Dosage: 30MG PER DAY
  6. ROSUVASTATIN CALCIUM [Concomitant]
     Dosage: 10MG PER DAY

REACTIONS (3)
  - MUSCULAR WEAKNESS [None]
  - HYPERHIDROSIS [None]
  - MALAISE [None]
